FAERS Safety Report 9291093 (Version 1)
Quarter: 2012Q4

REPORT INFORMATION
  Report Type: Spontaneous
  Country: FR (occurrence: None)
  Receive Date: 20121017
  Receipt Date: 20121017
  Transmission Date: 20130627
  Serious: Yes (Death, Hospitalization)
  Sender: FDA-Public Use
  Company Number: ENT 2012-0038

PATIENT
  Age: 69 Year
  Sex: Female

DRUGS (6)
  1. COMTAN [Suspect]
     Indication: PARKINSON^S DISEASE
     Dosage: (200 mg, 4 in 1 d)
     Route: 048
     Dates: start: 20100726
  2. TRIVASTAN [Suspect]
     Route: 048
     Dates: start: 2005, end: 20111013
  3. SINEMET LP [Suspect]
     Dosage: strength:  100/25 mg
     Route: 048
     Dates: start: 20080903
  4. SINEMET LP [Suspect]
     Dosage: strength:  100/25 mg
  5. SINEMET [Suspect]
     Dosage: 4 DF , strength:  100/10 mg
     Route: 048
     Dates: start: 2009
  6. SINEMET [Suspect]

REACTIONS (10)
  - Completed suicide [None]
  - Drowning [None]
  - Akinesia [None]
  - On and off phenomenon [None]
  - Apathy [None]
  - Drug withdrawal syndrome [None]
  - Impulsive behaviour [None]
  - Parkinson^s disease [None]
  - Disease progression [None]
  - Depression [None]
